FAERS Safety Report 4589158-1 (Version None)
Quarter: 2005Q1

REPORT INFORMATION
  Report Type: 
  Country: None (occurrence: None)
  Receive Date: 20050214
  Receipt Date: 20050214
  Transmission Date: 20050727
  Serious: Yes (Other)
  Sender: FDA-Public Use
  Company Number: None

PATIENT
  Sex: Female
  Weight: 57.6068 kg

DRUGS (4)
  1. ZOLOFT [Suspect]
     Indication: DISEASE RECURRENCE
     Dosage: 100 MG DAILY ORAL
     Route: 048
     Dates: start: 20030301, end: 20031101
  2. ZOLOFT [Suspect]
     Indication: MAJOR DEPRESSION
     Dosage: 100 MG DAILY ORAL
     Route: 048
     Dates: start: 20030301, end: 20031101
  3. ZOLOFT [Suspect]
     Indication: DISEASE RECURRENCE
     Dosage: 100 MG DAILY ORAL
     Route: 048
     Dates: start: 20040501, end: 20050213
  4. ZOLOFT [Suspect]
     Indication: MAJOR DEPRESSION
     Dosage: 100 MG DAILY ORAL
     Route: 048
     Dates: start: 20040501, end: 20050213

REACTIONS (12)
  - CONFUSIONAL STATE [None]
  - COORDINATION ABNORMAL [None]
  - DIZZINESS [None]
  - DRUG EFFECT DECREASED [None]
  - FEELING ABNORMAL [None]
  - HALLUCINATION, AUDITORY [None]
  - IMPAIRED DRIVING ABILITY [None]
  - INSOMNIA [None]
  - INTENTIONAL SELF-INJURY [None]
  - NAUSEA [None]
  - NIGHTMARE [None]
  - TREMOR [None]
